FAERS Safety Report 10890243 (Version 1)
Quarter: 2015Q1

REPORT INFORMATION
  Report Type: Spontaneous
  Country: US (occurrence: US)
  Receive Date: 20150305
  Receipt Date: 20150305
  Transmission Date: 20150721
  Serious: Yes (Other)
  Sender: FDA-Public Use
  Company Number: US-DRREDDYS-USA/USA/15/0046216

PATIENT
  Sex: Female
  Weight: 63.9 kg

DRUGS (3)
  1. ZENATANE [Suspect]
     Active Substance: ISOTRETINOIN
     Indication: SCAR
  2. TRETINOIN. [Concomitant]
     Active Substance: TRETINOIN
     Indication: PRODUCT USED FOR UNKNOWN INDICATION
     Route: 065
  3. ZENATANE [Suspect]
     Active Substance: ISOTRETINOIN
     Indication: ACNE CYSTIC
     Route: 048
     Dates: start: 20140922, end: 201412

REACTIONS (6)
  - Depression [Unknown]
  - Chapped lips [Recovered/Resolved]
  - Fatigue [Recovered/Resolved]
  - Muscle fatigue [Recovered/Resolved]
  - Lip dry [Recovered/Resolved]
  - Epistaxis [Recovered/Resolved]
